FAERS Safety Report 7073131-8 (Version None)
Quarter: 2010Q4

REPORT INFORMATION
  Report Type: 
  Country: None (occurrence: None)
  Receive Date: 20101029
  Receipt Date: 20100428
  Transmission Date: 20110411
  Serious: No
  Sender: FDA-Public Use
  Company Number: A0857091A

PATIENT
  Age: 56 Year
  Sex: Female

DRUGS (12)
  1. ADVAIR DISKUS 100/50 [Suspect]
     Indication: ASTHMA
     Dosage: 1PUFF PER DAY
     Route: 055
     Dates: start: 20100101
  2. ADVAIR DISKUS 100/50 [Suspect]
     Dosage: 1PUFF TWICE PER DAY
     Route: 055
     Dates: start: 20100101
  3. LANSOPRAZOLE [Concomitant]
  4. HYDROCHLOROTHIAZIDE [Concomitant]
  5. FEXOFENADINE HCL [Concomitant]
  6. VITAMIN D [Concomitant]
  7. FLUOXETINE [Concomitant]
  8. ESTRADIOL [Concomitant]
  9. LISINOPRIL [Concomitant]
  10. NAPROXEN [Concomitant]
  11. SINGULAIR [Concomitant]
  12. NASONEX [Concomitant]

REACTIONS (4)
  - ARTHRALGIA [None]
  - COELIAC DISEASE [None]
  - DIARRHOEA [None]
  - SWELLING [None]
